FAERS Safety Report 4470230-1 (Version None)
Quarter: 2004Q4

REPORT INFORMATION
  Report Type: 
  Country: None (occurrence: None)
  Receive Date: 20041008
  Receipt Date: 20041005
  Transmission Date: 20050328
  Serious: Yes (Death, Hospitalization)
  Sender: FDA-Public Use
  Company Number: AU-MERCK-0410AUS00065

PATIENT
  Age: 68 Year
  Sex: Female

DRUGS (2)
  1. [THERAPY UNSPECIFIED] [Concomitant]
     Indication: BLOOD CHOLESTEROL INCREASED
     Route: 065
  2. VIOXX [Suspect]
     Indication: PAIN
     Route: 048

REACTIONS (3)
  - EMPHYSEMA [None]
  - MYOCARDIAL INFARCTION [None]
  - PNEUMONIA [None]
